FAERS Safety Report 6836240-1 (Version None)
Quarter: 2010Q2

REPORT INFORMATION
  Report Type: 
  Country: None (occurrence: None)
  Receive Date: 20100624
  Receipt Date: 20100415
  Transmission Date: 20101027
  Serious: No
  Sender: FDA-Public Use
  Company Number: DKLU1060195

PATIENT
  Age: 13 Year
  Sex: Male

DRUGS (6)
  1. SABRIL [Suspect]
     Indication: COMPLEX PARTIAL SEIZURES
     Dosage: 1000 MG MILLIGRAM(S), 2 IN 1 D, ORAL; 500 MG MILLIGRAM(S), 2 IN 1 D, ORAL
     Route: 048
     Dates: start: 20100101, end: 20100301
  2. SABRIL [Suspect]
     Indication: COMPLEX PARTIAL SEIZURES
     Dosage: 1000 MG MILLIGRAM(S), 2 IN 1 D, ORAL; 500 MG MILLIGRAM(S), 2 IN 1 D, ORAL
     Route: 048
     Dates: start: 20100301, end: 20100330
  3. PHENOBARBITAL TAB [Concomitant]
  4. BACLOFEN [Concomitant]
  5. KEPPRA [Concomitant]
  6. VALPROIC ACID [Concomitant]

REACTIONS (6)
  - ASPIRATION [None]
  - COUGH DECREASED [None]
  - DRUG INEFFECTIVE [None]
  - LETHARGY [None]
  - PNEUMONIA [None]
  - PROTRUSION TONGUE [None]
